FAERS Safety Report 9166700 (Version 1)
Quarter: 2013Q1

REPORT INFORMATION
  Report Type: Report from Study
  Country: VE (occurrence: VE)
  Receive Date: 20130315
  Receipt Date: 20130315
  Transmission Date: 20140127
  Serious: Yes (Other)
  Sender: FDA-Public Use
  Company Number: VE-ABBOTT-13P-178-1062649-00

PATIENT
  Sex: Female
  Weight: 60 kg

DRUGS (5)
  1. HUMIRA [Suspect]
     Indication: RHEUMATOID ARTHRITIS
     Route: 058
     Dates: start: 20110413, end: 201203
  2. METHOTREXATE [Concomitant]
     Indication: RHEUMATOID ARTHRITIS
     Dosage: VO
  3. METICORTEN [Concomitant]
     Indication: RHEUMATOID ARTHRITIS
     Dosage: VO
  4. CARTEOLOL [Concomitant]
     Indication: RHEUMATOID ARTHRITIS
     Dosage: VO
  5. EUTHYROX [Concomitant]
     Indication: THYROID DISORDER
     Dosage: VO

REACTIONS (1)
  - Tuberculin test positive [Not Recovered/Not Resolved]
